FAERS Safety Report 18691348 (Version 1)
Quarter: 2021Q1

REPORT INFORMATION
  Report Type: Spontaneous
  Country: PK (occurrence: PK)
  Receive Date: 20210101
  Receipt Date: 20210101
  Transmission Date: 20210419
  Serious: No
  Sender: FDA-Public Use
  Company Number: PK-LUPIN PHARMACEUTICALS INC.-2020-11119

PATIENT

DRUGS (4)
  1. TRAMADOL. [Suspect]
     Active Substance: TRAMADOL
     Indication: PROPHYLAXIS
     Dosage: 25 MILLIGRAM, 0.5 MG/KG
     Route: 042
  2. RINGER LACTATE [CALCIUM CHLORIDE DIHYDRATE;MAGNESIUM CHLORIDE;POTASSIU [Concomitant]
     Indication: PRODUCT USED FOR UNKNOWN INDICATION
     Dosage: UNK (10 ML PER KG IN 30MINS)
     Route: 065
  3. BUPIVACAINE. [Concomitant]
     Active Substance: BUPIVACAINE
     Indication: SPINAL ANAESTHESIA
     Dosage: 3 MILLILITER
     Route: 037
  4. RINGER LACTATE [CALCIUM CHLORIDE DIHYDRATE;MAGNESIUM CHLORIDE;POTASSIU [Concomitant]
     Dosage: UNK (6ML PER KG PER HOUR)
     Route: 065

REACTIONS (1)
  - Nausea [Unknown]
